FAERS Safety Report 20249389 (Version 1)
Quarter: 2021Q4

REPORT INFORMATION
  Report Type: Spontaneous
  Country: US (occurrence: None)
  Receive Date: 20211229
  Receipt Date: 20211229
  Transmission Date: 20220303
  Serious: Yes (Disabling)
  Sender: FDA-Public Use
  Company Number: None

PATIENT
  Age: 50 Year
  Sex: Female

DRUGS (1)
  1. CASIRIVIMAB [Suspect]
     Active Substance: CASIRIVIMAB
     Indication: COVID-19
     Route: 030
     Dates: start: 20211222, end: 20211222

REACTIONS (3)
  - Rash [None]
  - Urticaria [None]
  - Chest pain [None]

NARRATIVE: CASE EVENT DATE: 20211222
